FAERS Safety Report 11003823 (Version 1)
Quarter: 2015Q2

REPORT INFORMATION
  Report Type: Spontaneous
  Country: US (occurrence: None)
  Receive Date: 20150408
  Receipt Date: 20150408
  Transmission Date: 20150821
  Serious: No
  Sender: FDA-Public Use
  Company Number: None

PATIENT
  Age: 63 Year
  Sex: Female
  Weight: 68.04 kg

DRUGS (1)
  1. CERDELGA [Suspect]
     Active Substance: ELIGLUSTAT
     Indication: GAUCHER^S DISEASE
     Route: 048
     Dates: start: 20150311

REACTIONS (7)
  - Dizziness [None]
  - Palpitations [None]
  - Abdominal discomfort [None]
  - Headache [None]
  - Middle insomnia [None]
  - Dyspnoea [None]
  - Abdominal distension [None]

NARRATIVE: CASE EVENT DATE: 20150405
